FAERS Safety Report 9316666 (Version 2)
Quarter: 2013Q3

REPORT INFORMATION
  Report Type: Spontaneous
  Country: JP (occurrence: JP)
  Receive Date: 20130530
  Receipt Date: 20130702
  Transmission Date: 20140515
  Serious: Yes (Other)
  Sender: FDA-Public Use
  Company Number: JP-ASTELLAS-2013JP006156

PATIENT
  Age: 28 Year
  Sex: Male

DRUGS (6)
  1. PROGRAF [Suspect]
     Indication: IMMUNOSUPPRESSANT DRUG THERAPY
     Route: 065
  2. FUNGUARD [Suspect]
     Indication: PYREXIA
     Dosage: 150 MG, UNKNOWN/D
     Route: 065
  3. METHOTREXATE [Suspect]
     Indication: IMMUNOSUPPRESSANT DRUG THERAPY
     Route: 065
  4. FLUCONAZOLE [Suspect]
     Indication: PROPHYLAXIS
     Dosage: 200 MG, UNKNOWN/D
     Route: 065
  5. ENDOXAN                            /00021101/ [Concomitant]
     Indication: PREMEDICATION
     Route: 065
  6. VP-16 [Concomitant]
     Indication: PREMEDICATION
     Route: 065

REACTIONS (3)
  - Drug ineffective [Unknown]
  - Acute graft versus host disease [Unknown]
  - Zygomycosis [Recovered/Resolved]
